FAERS Safety Report 9343270 (Version 3)
Quarter: 2014Q1

REPORT INFORMATION
  Report Type: Spontaneous
  Country: JP (occurrence: JP)
  Receive Date: 20130612
  Receipt Date: 20140102
  Transmission Date: 20141002
  Serious: Yes (Other)
  Sender: FDA-Public Use
  Company Number: JP-ROCHE-1234951

PATIENT
  Age: 42 Year
  Sex: Female
  Weight: 59 kg

DRUGS (5)
  1. ACTEMRA [Suspect]
     Indication: RHEUMATOID ARTHRITIS
     Route: 041
     Dates: start: 20120913, end: 2013
  2. ACTEMRA [Suspect]
     Indication: RHEUMATOID ARTHRITIS
     Route: 041
     Dates: start: 20130411, end: 2013
  3. ACTEMRA [Suspect]
     Indication: RHEUMATOID ARTHRITIS
     Route: 041
     Dates: start: 20130607
  4. TROXIPIDE [Concomitant]
     Indication: PROPHYLAXIS
     Route: 048
     Dates: start: 20110704
  5. CELECOX [Concomitant]
     Indication: PROPHYLAXIS
     Route: 048
     Dates: start: 20121012

REACTIONS (2)
  - Laryngeal granuloma [Not Recovered/Not Resolved]
  - Adenomyosis [Not Recovered/Not Resolved]
